FAERS Safety Report 6382058-6 (Version None)
Quarter: 2009Q3

REPORT INFORMATION
  Report Type: 
  Country: None (occurrence: None)
  Receive Date: 20090930
  Receipt Date: 20090921
  Transmission Date: 20100115
  Serious: Yes (Hospitalization)
  Sender: FDA-Public Use
  Company Number: ZA-BRISTOL-MYERS SQUIBB COMPANY-14794614

PATIENT
  Age: 11 Year
  Sex: Female

DRUGS (10)
  1. EFAVIRENZ [Suspect]
     Indication: ANTIRETROVIRAL THERAPY
  2. STAVUDINE [Suspect]
     Indication: ANTIRETROVIRAL THERAPY
  3. LAMIVUDINE [Suspect]
     Indication: ANTIRETROVIRAL THERAPY
  4. ISONIAZID [Suspect]
     Indication: PULMONARY TUBERCULOSIS
  5. RIFAMPICIN [Suspect]
     Indication: PULMONARY TUBERCULOSIS
  6. PYRAZINAMIDE [Suspect]
     Indication: PULMONARY TUBERCULOSIS
  7. ETHIONAMIDE [Suspect]
     Indication: PULMONARY TUBERCULOSIS
  8. ACETAZOLAMIDE [Suspect]
  9. FLUCONAZOLE [Suspect]
  10. PREDNISONE TAB [Suspect]

REACTIONS (1)
  - DELIRIUM [None]
